FAERS Safety Report 4916706-1 (Version None)
Quarter: 2006Q1

REPORT INFORMATION
  Report Type: 
  Country: None (occurrence: None)
  Receive Date: 20060220
  Receipt Date: 20060113
  Transmission Date: 20060701
  Serious: Yes (Death)
  Sender: FDA-Public Use
  Company Number: PHBS2006NO00885

PATIENT
  Age: 36 Year
  Sex: Male

DRUGS (2)
  1. PARALGIN FORTE [Concomitant]
     Indication: SHOULDER PAIN
     Dosage: 3 DF, PRN
     Route: 048
     Dates: start: 20050921
  2. VOLTAREN [Suspect]
     Indication: SHOULDER PAIN
     Dosage: 100 MG/DAY
     Route: 048
     Dates: start: 20051207, end: 20051225

REACTIONS (4)
  - CARDIAC ARREST [None]
  - CHEST PAIN [None]
  - MYOCARDIAL INFARCTION [None]
  - PULMONARY EMBOLISM [None]
